FAERS Safety Report 4598519-6 (Version None)
Quarter: 2005Q1

REPORT INFORMATION
  Report Type: 
  Country: None (occurrence: None)
  Receive Date: 20050304
  Receipt Date: 20050222
  Transmission Date: 20050727
  Serious: Yes (Other)
  Sender: FDA-Public Use
  Company Number: US-GLAXOSMITHKLINE-A0546842A

PATIENT
  Sex: Female
  Weight: 89 kg

DRUGS (14)
  1. AQUAFRESH FLUORIDE PROTECTION TOOTHPASTE [Suspect]
     Indication: DENTAL CARE
  2. SEROQUEL [Concomitant]
     Indication: SLEEP DISORDER
  3. EFFEXOR [Concomitant]
  4. UNKNOWN PSYCHOTROPIC [Concomitant]
  5. CALCIUM + D [Concomitant]
  6. ONE-A-DAY MULTIVITAMIN [Concomitant]
  7. SYNTHROID [Concomitant]
  8. KLONOPIN [Concomitant]
  9. LORATADINE [Concomitant]
  10. KLOR-CON [Concomitant]
  11. HYDROCHLOROTHIAZIDE [Concomitant]
     Indication: DIURETIC THERAPY
  12. BENICAR [Concomitant]
     Indication: HYPERTENSION
  13. ZYRTEC [Concomitant]
  14. NEXIUM [Concomitant]

REACTIONS (11)
  - ANEURYSM [None]
  - BLINDNESS [None]
  - CEREBROVASCULAR ACCIDENT [None]
  - CONVULSION [None]
  - DIABETES MELLITUS [None]
  - GALLBLADDER DISORDER [None]
  - HEADACHE [None]
  - NERVOUS SYSTEM DISORDER [None]
  - RENAL FAILURE [None]
  - ULCER HAEMORRHAGE [None]
  - VAGINAL HAEMORRHAGE [None]
